FAERS Safety Report 8184895-4 (Version None)
Quarter: 2012Q1

REPORT INFORMATION
  Report Type: 
  Country: None (occurrence: None)
  Receive Date: 20120305
  Receipt Date: 20120227
  Transmission Date: 20120608
  Serious: Yes (Other)
  Sender: FDA-Public Use
  Company Number: US-GLAXOSMITHKLINE-A0901426A

PATIENT
  Age: 19 Year
  Sex: Female

DRUGS (5)
  1. LAMICTAL XR [Suspect]
     Indication: CONVULSION
     Route: 048
     Dates: start: 20101205
  2. LAMICTAL [Suspect]
     Indication: CONVULSION
     Dosage: 100MG UNKNOWN
     Route: 048
     Dates: start: 20110114
  3. VIMPAT [Suspect]
     Indication: CONVULSION
     Dosage: 100MG TWICE PER DAY
     Route: 048
     Dates: start: 20101101
  4. UNSPECIFIED MEDICATION [Suspect]
     Indication: CONVULSION
     Route: 065
     Dates: start: 20120101
  5. NO CONCURRENT MEDICATION [Concomitant]

REACTIONS (6)
  - MIGRAINE [None]
  - FALL [None]
  - VOMITING [None]
  - CONVULSION [None]
  - TREMOR [None]
  - HEADACHE [None]
